FAERS Safety Report 5356856-1 (Version None)
Quarter: 2007Q2

REPORT INFORMATION
  Report Type: 
  Country: None (occurrence: None)
  Receive Date: 20070614
  Receipt Date: 20070306
  Transmission Date: 20071010
  Serious: No
  Sender: FDA-Public Use
  Company Number: US-ASTRAZENECA-2007UW04215

PATIENT
  Age: 84 Year
  Sex: Male
  Weight: 53.5 kg

DRUGS (7)
  1. ATACAND [Suspect]
     Indication: HYPERTENSION
     Route: 048
     Dates: start: 20070101
  2. FUROSEMIDE [Concomitant]
  3. ASPIRIN [Concomitant]
  4. DIGITEK [Concomitant]
  5. ALTOCOR [Concomitant]
  6. DOXAZOSIN MESYLATE [Concomitant]
  7. TEMAZEPAM [Concomitant]

REACTIONS (1)
  - BLISTER [None]
